FAERS Safety Report 15306578 (Version 1)
Quarter: 2018Q3

REPORT INFORMATION
  Report Type: Spontaneous
  Country: US (occurrence: US)
  Receive Date: 20180822
  Receipt Date: 20180822
  Transmission Date: 20181010
  Serious: No
  Sender: FDA-Public Use
  Company Number: US-ASTRAZENECA-2018SE97221

PATIENT
  Age: 18879 Day
  Sex: Female
  Weight: 104.3 kg

DRUGS (4)
  1. LISINOPRIL. [Suspect]
     Active Substance: LISINOPRIL
     Indication: HYPERTENSION
     Route: 048
  2. BYDUREON [Suspect]
     Active Substance: EXENATIDE
     Indication: TYPE 2 DIABETES MELLITUS
     Route: 058
     Dates: start: 20180629
  3. CLARITIN?D NOS [Concomitant]
     Active Substance: LORATADINE\PSEUDOEPHEDRINE SULFATE
     Route: 048
  4. METOPROLOL. [Suspect]
     Active Substance: METOPROLOL
     Indication: HYPERTENSION
     Dosage: 50 MG/25 MG HALF TABLET, TWO TIMES A DAY
     Route: 048
     Dates: start: 2015

REACTIONS (8)
  - Injection site erythema [Unknown]
  - Diabetes mellitus [Unknown]
  - Injection site pain [Unknown]
  - Paranasal sinus discomfort [Unknown]
  - Injection site pruritus [Unknown]
  - Discomfort [Unknown]
  - Injection site mass [Not Recovered/Not Resolved]
  - Fatigue [Unknown]

NARRATIVE: CASE EVENT DATE: 20180727
